FAERS Safety Report 8892751 (Version 1)
Quarter: 2012Q4

REPORT INFORMATION
  Report Type: 
  Country: US (occurrence: None)
  Receive Date: 20121106
  Receipt Date: 20121106
  Transmission Date: 20130627
  Serious: Yes (Hospitalization)
  Sender: FDA-Public Use
  Company Number: None

PATIENT
  Age: 49 Year
  Sex: Male
  Weight: 76.66 kg

DRUGS (6)
  1. COUMADIN [Suspect]
     Indication: PERIPHERAL ARTERIAL DISEASE
     Route: 048
  2. CIPRO [Suspect]
     Indication: POSTOPERATIVE CARE
     Route: 048
     Dates: start: 20121018, end: 20121024
  3. CIPRO [Suspect]
     Indication: PROPHYLAXIS
     Route: 048
     Dates: start: 20121018, end: 20121024
  4. VERAPAMIL [Concomitant]
  5. SIMVASTATIN [Concomitant]
  6. PERCOCET [Concomitant]

REACTIONS (8)
  - Haematuria [None]
  - Flank pain [None]
  - Nephrolithiasis [None]
  - Dysuria [None]
  - Coagulopathy [None]
  - International normalised ratio increased [None]
  - Drug interaction [None]
  - Malnutrition [None]
